FAERS Safety Report 6200042-X (Version None)
Quarter: 2009Q2

REPORT INFORMATION
  Report Type: 
  Country: None (occurrence: None)
  Receive Date: 20090522
  Receipt Date: 20090514
  Transmission Date: 20091009
  Serious: Yes (Hospitalization)
  Sender: FDA-Public Use
  Company Number: IE-AMGEN-QUU347180

PATIENT
  Sex: Female

DRUGS (4)
  1. NEULASTA [Suspect]
     Indication: CHEMOTHERAPY
     Route: 065
     Dates: start: 20090505
  2. IFOSFAMIDE [Concomitant]
     Dates: start: 20090504
  3. DOXORUBICIN HYDROCHLORIDE [Concomitant]
     Dates: start: 20090504
  4. ETOPOSIDE [Concomitant]
     Dates: start: 20090504

REACTIONS (2)
  - DRUG INEFFECTIVE [None]
  - NEUTROPENIA [None]
